FAERS Safety Report 12271134 (Version 2)
Quarter: 2016Q2

REPORT INFORMATION
  Report Type: Spontaneous
  Country: FI (occurrence: FI)
  Receive Date: 20160415
  Receipt Date: 20160511
  Transmission Date: 20160815
  Serious: Yes (Death, Hospitalization)
  Sender: FDA-Public Use
  Company Number: FI-CELGENEUS-FIN-2016014637

PATIENT
  Age: 52 Year
  Sex: Female

DRUGS (14)
  1. ABRAXANE [Suspect]
     Active Substance: PACLITAXEL
     Indication: BREAST CANCER METASTATIC
     Route: 041
     Dates: start: 20140530, end: 20150109
  2. ABRAXANE [Suspect]
     Active Substance: PACLITAXEL
     Dosage: 40 MILLIGRAM
     Route: 041
     Dates: start: 20151015, end: 20160108
  3. XGEVA [Concomitant]
     Active Substance: DENOSUMAB
     Indication: METASTASES TO BONE
     Dosage: 4 MILLIGRAM
     Route: 058
     Dates: start: 20140528, end: 20151113
  4. IBUMETIN [Concomitant]
     Active Substance: IBUPROFEN
     Indication: PAIN
     Route: 065
     Dates: start: 20151218, end: 20160112
  5. NEULASTA [Concomitant]
     Active Substance: PEGFILGRASTIM
     Indication: COLONY STIMULATING FACTOR THERAPY
     Dosage: AFTER SYTOTOXIC DRUG
     Route: 058
     Dates: start: 20151015, end: 20160109
  6. PANADOL [Concomitant]
     Active Substance: ACETAMINOPHEN
     Indication: PAIN
     Route: 065
     Dates: start: 20140602, end: 20160116
  7. PANADOL [Concomitant]
     Active Substance: ACETAMINOPHEN
     Route: 065
     Dates: start: 20140602, end: 20160116
  8. GRANISETRON [Concomitant]
     Active Substance: GRANISETRON
     Indication: NAUSEA
     Dosage: 1 MILLIGRAM
     Route: 065
     Dates: start: 20151204
  9. DOXIMYCIN [Concomitant]
     Active Substance: DOXYCYCLINE
     Indication: OSTEOMYELITIS
     Route: 065
     Dates: start: 20151104, end: 20160112
  10. SOMAC [Concomitant]
     Active Substance: PANTOPRAZOLE SODIUM
     Indication: GASTROOESOPHAGEAL REFLUX PROPHYLAXIS
     Route: 065
     Dates: start: 20140528
  11. CALCICHEW [Concomitant]
     Active Substance: CALCIUM CARBONATE
     Indication: NAUSEA
     Route: 048
     Dates: start: 20140528
  12. PANACOD [Concomitant]
     Active Substance: ACETAMINOPHEN\CODEINE PHOSPHATE
     Indication: PAIN
     Dosage: 50/30MG
     Route: 065
     Dates: start: 20140602, end: 20160116
  13. LITALGIN [Concomitant]
     Active Substance: PITOFENONE
     Indication: BILIARY COLIC
     Dosage: 500MG/5MG
     Route: 065
     Dates: start: 20160107, end: 20160112
  14. LETROZOLE. [Concomitant]
     Active Substance: LETROZOLE
     Indication: AROMATASE INHIBITION THERAPY
     Dosage: 2.5 MILLIGRAM
     Route: 065
     Dates: start: 20140528, end: 20160112

REACTIONS (6)
  - Skin exfoliation [Not Recovered/Not Resolved]
  - Hepatomegaly [Not Recovered/Not Resolved]
  - Disease progression [Fatal]
  - White blood cell count decreased [Recovering/Resolving]
  - Eczema [Not Recovered/Not Resolved]
  - Breast cancer metastatic [Fatal]

NARRATIVE: CASE EVENT DATE: 20160111
